FAERS Safety Report 21268097 (Version 1)
Quarter: 2022Q3

REPORT INFORMATION
  Report Type: Spontaneous
  Country: US (occurrence: US)
  Receive Date: 20220829
  Receipt Date: 20220829
  Transmission Date: 20221026
  Serious: No
  Sender: FDA-Public Use
  Company Number: US-BRISTOL-MYERS SQUIBB COMPANY-2022-097016

PATIENT
  Age: 74 Year
  Sex: Female
  Weight: 63 kg

DRUGS (1)
  1. ELIQUIS [Suspect]
     Active Substance: APIXABAN
     Indication: Product used for unknown indication
     Dosage: DOSE : UNAVAILABLE (NOT PROVIDED);     FREQ : TWO TIMES A DAY
     Route: 048

REACTIONS (5)
  - Pruritus [Unknown]
  - Vision blurred [Unknown]
  - Hypoaesthesia [Unknown]
  - Weight decreased [Unknown]
  - Memory impairment [Unknown]
